FAERS Safety Report 21441344 (Version 3)
Quarter: 2022Q4

REPORT INFORMATION
  Report Type: Report from Study
  Country: US (occurrence: US)
  Receive Date: 20221011
  Receipt Date: 20221019
  Transmission Date: 20230113
  Serious: Yes (Death)
  Sender: FDA-Public Use
  Company Number: US-ABBVIE-4149774

PATIENT
  Sex: Male
  Weight: 88.45 kg

DRUGS (7)
  1. HUMIRA [Suspect]
     Active Substance: ADALIMUMAB
     Indication: Psoriatic arthropathy
     Dosage: CITRATE FREE
     Route: 058
     Dates: start: 2021
  2. Covid 19 Vaccination [Concomitant]
     Indication: COVID-19 pneumonia
     Route: 030
     Dates: start: 20210126, end: 20210126
  3. Covid 19 Vaccination [Concomitant]
     Indication: COVID-19 pneumonia
     Route: 030
     Dates: start: 20211118, end: 20211118
  4. Covid 19 Vaccination [Concomitant]
     Indication: COVID-19 pneumonia
     Route: 030
     Dates: start: 20220503, end: 20220503
  5. Covid 19 Vaccination [Concomitant]
     Indication: COVID-19 pneumonia
     Route: 030
     Dates: start: 20210224, end: 20210224
  6. METHOTREXATE [Concomitant]
     Active Substance: METHOTREXATE
     Indication: Rheumatoid arthritis
     Route: 065
  7. HYDROCODONE [Concomitant]
     Active Substance: HYDROCODONE
     Indication: Pain
     Route: 065

REACTIONS (1)
  - Glioblastoma [Fatal]

NARRATIVE: CASE EVENT DATE: 20220101
